FAERS Safety Report 4311125-3 (Version None)
Quarter: 2004Q1

REPORT INFORMATION
  Report Type: 
  Country: None (occurrence: None)
  Receive Date: 20040302
  Receipt Date: 20040302
  Transmission Date: 20041129
  Serious: Yes (Other)
  Sender: FDA-Public Use
  Company Number: None

PATIENT
  Age: 68 Year
  Sex: Male

DRUGS (12)
  1. METFORMIN HCL [Suspect]
     Indication: DIABETES MELLITUS NON-INSULIN-DEPENDENT
     Dosage: 500 MG PO TID
     Route: 048
     Dates: start: 20040101, end: 20040213
  2. LOTREL [Concomitant]
  3. PLAVIX [Concomitant]
  4. GLIPIZIDE [Concomitant]
  5. ATENOLOL [Concomitant]
  6. DIGITEK [Concomitant]
  7. NEXIUM [Concomitant]
  8. ZETIA [Concomitant]
  9. NIASPAN [Concomitant]
  10. HYDROCHLOROTHIAZIDE [Concomitant]
  11. LOVASTATIN [Concomitant]
  12. XALATAN [Concomitant]

REACTIONS (2)
  - BLOOD GLUCOSE INCREASED [None]
  - PHARMACEUTICAL PRODUCT COMPLAINT [None]
